APPROVED DRUG PRODUCT: SEYSARA
Active Ingredient: SARECYCLINE HYDROCHLORIDE
Strength: EQ 100MG BASE
Dosage Form/Route: TABLET;ORAL
Application: N209521 | Product #002
Applicant: ALMIRALL LLC
Approved: Oct 1, 2018 | RLD: Yes | RS: No | Type: RX

PATENTS:
Patent 8318706 | Expires: Jan 3, 2032
Patent 9481639 | Expires: Aug 10, 2028
Patent 8513223 | Expires: Dec 7, 2029
Patent 9255068 | Expires: Feb 9, 2033
Patent 9255068 | Expires: Feb 9, 2033